FAERS Safety Report 10871434 (Version 1)
Quarter: 2015Q1

REPORT INFORMATION
  Report Type: Spontaneous
  Country: US (occurrence: US)
  Receive Date: 20150226
  Receipt Date: 20150226
  Transmission Date: 20150721
  Serious: Yes (Other)
  Sender: FDA-Public Use
  Company Number: US-TEVA-536185USA

PATIENT
  Sex: Male

DRUGS (1)
  1. CARVEDILOL. [Suspect]
     Active Substance: CARVEDILOL
     Indication: CARDIAC FAILURE CONGESTIVE
     Route: 065

REACTIONS (3)
  - Blood pressure systolic decreased [Recovered/Resolved]
  - Duodenal ulcer haemorrhage [Unknown]
  - Mental impairment [Unknown]
